FAERS Safety Report 4393346-7 (Version None)
Quarter: 2004Q3

REPORT INFORMATION
  Report Type: 
  Country: None (occurrence: None)
  Receive Date: 20040709
  Receipt Date: 20040702
  Transmission Date: 20050211
  Serious: Yes (Hospitalization)
  Sender: FDA-Public Use
  Company Number: PHBS2004DE08712

PATIENT
  Age: 44 Year
  Sex: Male

DRUGS (5)
  1. RIFUN #AT [Suspect]
     Dosage: 2 DF, ONCE/SINGLE
     Route: 048
     Dates: start: 20040428, end: 20040428
  2. DICLOFENAC SODIUM [Suspect]
     Dosage: 4 DF, ONCE/SINGLE
     Route: 048
     Dates: start: 20040428, end: 20040428
  3. LORAZEPAM [Suspect]
     Dosage: 4 MG, ONCE/SINGLE
     Route: 048
     Dates: start: 20040428, end: 20040428
  4. AKINETON [Suspect]
     Dosage: 40 MG, ONCE/SINGLE
     Route: 048
     Dates: start: 20040428, end: 20040428
  5. TRUXAL [Concomitant]
     Dosage: 30 MG, ONCE/SINGLE
     Route: 048
     Dates: start: 20040428, end: 20040428

REACTIONS (2)
  - FATIGUE [None]
  - MULTIPLE DRUG OVERDOSE [None]
